FAERS Safety Report 10174484 (Version 2)
Quarter: 2014Q2

REPORT INFORMATION
  Report Type: Spontaneous
  Country: US (occurrence: US)
  Receive Date: 20140515
  Receipt Date: 20140609
  Transmission Date: 20141212
  Serious: Yes (Other)
  Sender: FDA-Public Use
  Company Number: CHPA2014US006360

PATIENT
  Age: 35 Year
  Sex: Female

DRUGS (2)
  1. TRANSDERM SCOP [Suspect]
     Indication: BALANCE DISORDER
     Dosage: 1 UNK, Q72H
     Route: 062
     Dates: start: 201302
  2. TRANSDERM SCOP [Suspect]
     Indication: OFF LABEL USE

REACTIONS (4)
  - Convulsion [Unknown]
  - Scar [Unknown]
  - Skin burning sensation [Unknown]
  - Incorrect drug administration duration [Unknown]
